FAERS Safety Report 16757690 (Version 1)
Quarter: 2019Q3

REPORT INFORMATION
  Report Type: Spontaneous
  Country: GB (occurrence: GB)
  Receive Date: 20190830
  Receipt Date: 20190830
  Transmission Date: 20191005
  Serious: Yes (Disabling, Other)
  Sender: FDA-Public Use
  Company Number: GB-SUN PHARMACEUTICAL INDUSTRIES LTD-2019R1-218860

PATIENT
  Age: 15 Year
  Sex: Male
  Weight: 63.4 kg

DRUGS (1)
  1. ISOTRETINOIN. [Suspect]
     Active Substance: ISOTRETINOIN
     Indication: ACNE
     Dosage: 20 MILLIGRAM, DAILY, INCREASED UP TO 20MG
     Route: 048
     Dates: start: 20180901, end: 20190101

REACTIONS (3)
  - Educational problem [Recovering/Resolving]
  - Disturbance in attention [Recovering/Resolving]
  - Abnormal behaviour [Recovering/Resolving]

NARRATIVE: CASE EVENT DATE: 20180901
